FAERS Safety Report 8511043-0 (Version None)
Quarter: 2012Q3

REPORT INFORMATION
  Report Type: 
  Country: None (occurrence: None)
  Receive Date: 20120716
  Receipt Date: 20120712
  Transmission Date: 20120928
  Serious: Yes (Other)
  Sender: FDA-Public Use
  Company Number: CA-TEVA-348200USA

PATIENT
  Age: 66 Year
  Sex: Female
  Weight: 63.56 kg

DRUGS (14)
  1. ZOLEDRONOC ACID [Concomitant]
     Route: 042
  2. PREDNISONE [Concomitant]
  3. CLONIDINE [Suspect]
     Dosage: 4 DOSAGE FORMS;
     Route: 048
  4. NEXIUM [Concomitant]
  5. METHOTREXATE [Concomitant]
  6. SYMBICORT [Concomitant]
     Dosage: 200 TURBUHALER, POWDER
  7. NAPROXEN [Concomitant]
  8. SPIRIVA [Concomitant]
  9. VITAMIN D [Concomitant]
  10. DIAZEPAM [Concomitant]
  11. CALCIUM [Concomitant]
  12. IPRATROPIUM BROMIDE [Concomitant]
  13. WELLBUTRIN XL [Concomitant]
  14. OMNARIS [Concomitant]
     Dosage: SPRAY METERED DOSE

REACTIONS (5)
  - DIZZINESS [None]
  - CONVULSION [None]
  - LOSS OF CONSCIOUSNESS [None]
  - FEELING ABNORMAL [None]
  - VOMITING [None]
